FAERS Safety Report 7618093-7 (Version None)
Quarter: 2011Q3

REPORT INFORMATION
  Report Type: 
  Country: None (occurrence: None)
  Receive Date: 20110718
  Receipt Date: 20110707
  Transmission Date: 20111222
  Serious: Yes (Hospitalization)
  Sender: FDA-Public Use
  Company Number: TR-US-EMD SERONO, INC.-7070058

PATIENT
  Sex: Male
  Weight: 42 kg

DRUGS (3)
  1. SAIZEN [Suspect]
     Indication: GROWTH HORMONE DEFICIENCY
     Route: 058
     Dates: start: 20080701, end: 20110704
  2. SERTRALINE HYDROCHLORIDE [Suspect]
     Indication: SLEEP DISORDER
     Route: 048
     Dates: start: 20110628, end: 20110704
  3. MIRTAZAPINE [Suspect]
     Indication: SLEEP DISORDER
     Route: 048
     Dates: start: 20110628, end: 20110704

REACTIONS (2)
  - EPILEPSY [None]
  - DRUG DOSE OMISSION [None]
